FAERS Safety Report 7517208-9 (Version None)
Quarter: 2011Q2

REPORT INFORMATION
  Report Type: 
  Country: None (occurrence: None)
  Receive Date: 20110601
  Receipt Date: 20110524
  Transmission Date: 20111010
  Serious: Yes (Hospitalization)
  Sender: FDA-Public Use
  Company Number: JP-AMGEN-JPNCT2011028046

PATIENT
  Age: 68 Year
  Sex: Male

DRUGS (5)
  1. FLUOROURACIL [Concomitant]
     Indication: COLORECTAL CANCER
     Route: 040
     Dates: start: 20110426
  2. PANITUMUMAB [Suspect]
     Indication: COLORECTAL CANCER
     Dosage: 600 MG, Q2WK
     Route: 041
     Dates: start: 20110426
  3. LEUCOVORIN CALCIUM [Concomitant]
     Indication: COLORECTAL CANCER
     Route: 041
     Dates: start: 20110426
  4. FLUOROURACIL [Concomitant]
     Route: 041
     Dates: start: 20110426
  5. IRINOTECAN HCL [Concomitant]
     Indication: COLORECTAL CANCER
     Route: 041
     Dates: start: 20110426

REACTIONS (1)
  - GASTROINTESTINAL PERFORATION [None]
